FAERS Safety Report 9743315 (Version 1)
Quarter: 2013Q4

REPORT INFORMATION
  Report Type: Spontaneous
  Country: US (occurrence: US)
  Receive Date: 20131210
  Receipt Date: 20131210
  Transmission Date: 20140711
  Serious: Yes (Death, Other)
  Sender: FDA-Public Use
  Company Number: US-PURDUE-USA-2013-0109276

PATIENT
  Age: 51 Year
  Sex: Female

DRUGS (4)
  1. OXYCONTIN (NDA 22-272) [Suspect]
     Indication: PAIN
     Dosage: 20 MG, BID
     Route: 048
     Dates: start: 20101214
  2. OXYCONTIN (NDA 22-272) [Suspect]
     Dosage: 20 MG, TID
     Route: 048
     Dates: start: 20101216
  3. OXYCONTIN (NDA 22-272) [Suspect]
     Dosage: 30 MG, TID
     Route: 048
     Dates: start: 201012
  4. CLONAZEPAM [Suspect]
     Indication: ANXIETY
     Route: 048

REACTIONS (6)
  - Overdose [Fatal]
  - Cardio-respiratory arrest [Fatal]
  - Sedation [Unknown]
  - Unresponsive to stimuli [Not Recovered/Not Resolved]
  - Pulse abnormal [Not Recovered/Not Resolved]
  - Hypopnoea [Not Recovered/Not Resolved]
